FAERS Safety Report 8287249-5 (Version None)
Quarter: 2012Q2

REPORT INFORMATION
  Report Type: 
  Country: None (occurrence: None)
  Receive Date: 20120416
  Receipt Date: 20120402
  Transmission Date: 20120825
  Serious: Yes (Other)
  Sender: FDA-Public Use
  Company Number: US-SANOFI-AVENTIS-2012SA022787

PATIENT
  Age: 80 Year
  Sex: Female

DRUGS (6)
  1. AMBIEN CR [Suspect]
     Route: 048
     Dates: start: 20050101
  2. AMBIEN CR [Suspect]
     Route: 048
  3. AMBIEN [Suspect]
     Route: 048
     Dates: start: 20040101, end: 20040101
  4. AMBIEN [Suspect]
     Indication: ANXIETY
     Route: 048
     Dates: start: 20040101, end: 20040101
  5. AMBIEN CR [Suspect]
     Indication: ANXIETY
     Route: 048
     Dates: start: 20050101
  6. AMBIEN CR [Suspect]
     Route: 048

REACTIONS (3)
  - GASTROOESOPHAGEAL REFLUX DISEASE [None]
  - GALLBLADDER DISORDER [None]
  - GASTRITIS [None]
